FAERS Safety Report 19280894 (Version 1)
Quarter: 2021Q2

REPORT INFORMATION
  Report Type: Spontaneous
  Country: JP (occurrence: JP)
  Receive Date: 20210521
  Receipt Date: 20210521
  Transmission Date: 20210717
  Serious: Yes (Hospitalization)
  Sender: FDA-Public Use
  Company Number: JP-UCBSA-2021023997

PATIENT
  Sex: Female

DRUGS (3)
  1. ALEVIATIN [PHENYTOIN] [Concomitant]
     Active Substance: PHENYTOIN
     Indication: PRODUCT USED FOR UNKNOWN INDICATION
     Dosage: 250 MILLIGRAM, ONCE DAILY (QD)
     Route: 048
  2. E KEPPRA [Suspect]
     Active Substance: LEVETIRACETAM
     Dosage: 750 MILLIGRAM, DAILY
     Route: 048
     Dates: start: 2021
  3. E KEPPRA [Suspect]
     Active Substance: LEVETIRACETAM
     Indication: PRODUCT USED FOR UNKNOWN INDICATION
     Dosage: 500 MILLIGRAM
     Route: 048
     Dates: start: 202104, end: 2021

REACTIONS (5)
  - Loss of consciousness [Recovered/Resolved]
  - Weight decreased [Unknown]
  - Status epilepticus [Unknown]
  - Liver function test abnormal [Unknown]
  - Underdose [Unknown]

NARRATIVE: CASE EVENT DATE: 2021
